FAERS Safety Report 6489667-4 (Version None)
Quarter: 2009Q4

REPORT INFORMATION
  Report Type: 
  Country: None (occurrence: None)
  Receive Date: 20091207
  Receipt Date: 20091121
  Transmission Date: 20100525
  Serious: Yes (Hospitalization, Other)
  Sender: FDA-Public Use
  Company Number: GRP09000081

PATIENT
  Age: 69 Year
  Sex: Female
  Weight: 65 kg

DRUGS (3)
  1. ACTONEL [Suspect]
     Indication: OSTEOPOROSIS
     Dosage: 35 MG, 1 /WEEK, ORAL
     Route: 048
     Dates: start: 20090301, end: 20090901
  2. IDEOS /00108001/ (CALCIUM CARBONATE) [Concomitant]
  3. CALCIGEN (CALCIUM CARBONATE) [Concomitant]

REACTIONS (1)
  - UTERINE CANCER [None]
